FAERS Safety Report 10909370 (Version 1)
Quarter: 2015Q1

REPORT INFORMATION
  Report Type: Spontaneous
  Country: US (occurrence: US)
  Receive Date: 20150312
  Receipt Date: 20150312
  Transmission Date: 20150721
  Serious: No
  Sender: FDA-Public Use
  Company Number: US-SA-2014SA052630

PATIENT
  Age: 27 Year
  Sex: Female
  Weight: 67.58 kg

DRUGS (3)
  1. NASACORT ALLERGY 24HR [Suspect]
     Active Substance: TRIAMCINOLONE ACETONIDE
     Indication: SINUS CONGESTION
     Dosage: TAKEN FROM: ONE WEEK AGO?DOSE:2 SPRAYS EA NOSTRIL
     Route: 045
     Dates: end: 20140412
  2. CYMBALTA [Concomitant]
     Active Substance: DULOXETINE HYDROCHLORIDE
     Indication: ANXIETY DISORDER
  3. NASACORT ALLERGY 24HR [Suspect]
     Active Substance: TRIAMCINOLONE ACETONIDE
     Indication: HYPERSENSITIVITY
     Dosage: TAKEN FROM: ONE WEEK AGO?DOSE:2 SPRAYS EA NOSTRIL
     Route: 045
     Dates: end: 20140412

REACTIONS (1)
  - Epistaxis [Recovered/Resolved]
